FAERS Safety Report 24673574 (Version 3)
Quarter: 2025Q1

REPORT INFORMATION
  Report Type: Spontaneous
  Country: CA (occurrence: CA)
  Receive Date: 20241128
  Receipt Date: 20250103
  Transmission Date: 20250409
  Serious: Yes (Life-Threatening, Hospitalization, Other)
  Sender: CSL BEHRING
  Company Number: CA-BEH-2024186040

PATIENT
  Age: 70 Year
  Sex: Male

DRUGS (11)
  1. HUMAN C1-ESTERASE INHIBITOR [Suspect]
     Active Substance: HUMAN C1-ESTERASE INHIBITOR
     Indication: Hereditary angioedema
     Dosage: 1000 MG, BIW
     Route: 065
  2. HUMAN C1-ESTERASE INHIBITOR [Suspect]
     Active Substance: HUMAN C1-ESTERASE INHIBITOR
     Indication: Acquired C1 inhibitor deficiency
     Dosage: 1500 MG, BIW
     Route: 065
  3. HUMAN C1-ESTERASE INHIBITOR [Suspect]
     Active Substance: HUMAN C1-ESTERASE INHIBITOR
     Indication: Off label use
     Route: 065
  4. HUMAN C1-ESTERASE INHIBITOR [Suspect]
     Active Substance: HUMAN C1-ESTERASE INHIBITOR
     Indication: Angioedema
  5. FIRAZYR [Suspect]
     Active Substance: ICATIBANT ACETATE
     Indication: Product used for unknown indication
     Route: 065
  6. EPINEPHRINE [Suspect]
     Active Substance: EPINEPHRINE
     Indication: Angioedema
     Route: 065
  7. DIPHENHYDRAMINE [Suspect]
     Active Substance: DIPHENHYDRAMINE
     Indication: Angioedema
     Route: 042
  8. METHYLPREDNISOLONE [Suspect]
     Active Substance: METHYLPREDNISOLONE
     Indication: Angioedema
     Route: 042
  9. VASOTEC [Suspect]
     Active Substance: ENALAPRIL MALEATE
     Indication: Hypertension
     Route: 065
  10. VASOTEC [Suspect]
     Active Substance: ENALAPRIL MALEATE
     Route: 048
  11. ENALAPRIL [Suspect]
     Active Substance: ENALAPRIL
     Indication: Hypertension
     Route: 065

REACTIONS (9)
  - Angioedema [Recovered/Resolved]
  - Off label use [Unknown]
  - Hereditary angioedema [Not Recovered/Not Resolved]
  - Non-Hodgkin^s lymphoma [Not Recovered/Not Resolved]
  - Leukaemia [Not Recovered/Not Resolved]
  - Furuncle [Not Recovered/Not Resolved]
  - Intentional product use issue [Unknown]
  - Prescribed overdose [Unknown]
  - Product dose omission issue [Unknown]
